FAERS Safety Report 15080129 (Version 2)
Quarter: 2018Q3

REPORT INFORMATION
  Report Type: Spontaneous
  Country: DE (occurrence: DE)
  Receive Date: 20180627
  Receipt Date: 20180803
  Transmission Date: 20181010
  Serious: Yes (Death)
  Sender: FDA-Public Use
  Company Number: DE-ANIPHARMA-2018-DE-000118

PATIENT
  Age: 74 Year
  Sex: Male

DRUGS (14)
  1. FALITHROM [Suspect]
     Active Substance: PHENPROCOUMON
     Route: 065
  2. TOREM [Suspect]
     Active Substance: TORSEMIDE
     Route: 065
  3. METFORMIN [Suspect]
     Active Substance: METFORMIN HYDROCHLORIDE
     Route: 065
  4. SEROQUEL [Suspect]
     Active Substance: QUETIAPINE FUMARATE
     Route: 048
  5. DONEPEZIL. [Suspect]
     Active Substance: DONEPEZIL
     Route: 065
  6. CANDESARTAN HCT [Suspect]
     Active Substance: CANDESARTAN CILEXETIL\HYDROCHLOROTHIAZIDE
     Indication: PRODUCT USED FOR UNKNOWN INDICATION
     Route: 048
  7. SIMVASTATIN. [Suspect]
     Active Substance: SIMVASTATIN
     Route: 065
  8. BISOPROLOL [Suspect]
     Active Substance: BISOPROLOL
     Route: 065
  9. RISPERDAL [Suspect]
     Active Substance: RISPERIDONE
     Route: 065
  10. APIDRA [Suspect]
     Active Substance: INSULIN GLULISINE
     Route: 065
  11. LEVOMEPROMAZIN [Suspect]
     Active Substance: LEVOMEPROMAZINE
     Route: 065
  12. LANTUS [Suspect]
     Active Substance: INSULIN GLARGINE
     Route: 065
  13. TAMSULOSIN [Suspect]
     Active Substance: TAMSULOSIN
     Route: 065
  14. ALLOPURINOL. [Suspect]
     Active Substance: ALLOPURINOL
     Route: 065

REACTIONS (18)
  - Drug interaction [Unknown]
  - Gastric haemorrhage [Unknown]
  - Confusional state [Unknown]
  - Dizziness [Unknown]
  - Gastrointestinal haemorrhage [Unknown]
  - Haematoma [Unknown]
  - Balance disorder [Unknown]
  - Contusion [Unknown]
  - Blood glucose fluctuation [Unknown]
  - Urinary incontinence [Unknown]
  - Blood glucose abnormal [Unknown]
  - Death [Fatal]
  - Intestinal haemorrhage [Unknown]
  - Hyperhidrosis [Unknown]
  - Adverse drug reaction [Unknown]
  - Renal failure [Unknown]
  - Contraindicated product administered [Unknown]
  - Cognitive disorder [Unknown]

NARRATIVE: CASE EVENT DATE: 2017
